FAERS Safety Report 19907858 (Version 8)
Quarter: 2025Q2

REPORT INFORMATION
  Report Type: Report from Study
  Country: US (occurrence: US)
  Receive Date: 20211001
  Receipt Date: 20250523
  Transmission Date: 20250717
  Serious: Yes (Other)
  Sender: TAKEDA
  Company Number: US-SHIRE-US202032081

PATIENT
  Sex: Female

DRUGS (4)
  1. HUMAN IMMUNOGLOBULIN G\HYALURONIDASE RECOMBINANT HUMAN [Suspect]
     Active Substance: HUMAN IMMUNOGLOBULIN G\HYALURONIDASE (HUMAN RECOMBINANT)
     Indication: Immunodeficiency common variable
     Dosage: UNK UNK, Q2WEEKS
  2. CUVITRU [Suspect]
     Active Substance: HUMAN IMMUNOGLOBULIN G
     Indication: Immunodeficiency common variable
     Dosage: UNK UNK, 1/WEEK
  3. CUVITRU [Suspect]
     Active Substance: HUMAN IMMUNOGLOBULIN G
     Indication: Primary immunodeficiency syndrome
  4. XOLAIR [Suspect]
     Active Substance: OMALIZUMAB
     Indication: Mast cell activation syndrome

REACTIONS (13)
  - Systemic mastocytosis [Unknown]
  - Osteopenia [Unknown]
  - Cyst [Unknown]
  - Gastrointestinal disorder [Unknown]
  - Neoplasm [Unknown]
  - Product administration error [Unknown]
  - Illness [Unknown]
  - Inappropriate schedule of product administration [Unknown]
  - Product distribution issue [Unknown]
  - Infection [Not Recovered/Not Resolved]
  - Blood thyroid stimulating hormone abnormal [Unknown]
  - Asthma [Unknown]
  - Rash [Unknown]
